FAERS Safety Report 23480076 (Version 4)
Quarter: 2024Q2

REPORT INFORMATION
  Report Type: Report from Study
  Country: AU (occurrence: AU)
  Receive Date: 20240205
  Receipt Date: 20240521
  Transmission Date: 20240716
  Serious: Yes (Hospitalization, Other)
  Sender: FDA-Public Use
  Company Number: AU-TAKEDA-2024TUS006841

PATIENT
  Sex: Female

DRUGS (1)
  1. VEDOLIZUMAB [Suspect]
     Active Substance: VEDOLIZUMAB
     Indication: Colitis ulcerative
     Dosage: 300 MILLIGRAM
     Route: 042
     Dates: start: 20240104

REACTIONS (4)
  - Gastrointestinal haemorrhage [Not Recovered/Not Resolved]
  - Thrombosis [Unknown]
  - Herpes zoster [Not Recovered/Not Resolved]
  - Cellulitis [Unknown]
